FAERS Safety Report 4423391-4 (Version None)
Quarter: 2004Q3

REPORT INFORMATION
  Report Type: 
  Country: None (occurrence: None)
  Receive Date: 20040811
  Receipt Date: 20040806
  Transmission Date: 20050211
  Serious: Yes (Other)
  Sender: FDA-Public Use
  Company Number: PHBS2004JP10479

PATIENT
  Age: 62 Year
  Sex: Female

DRUGS (5)
  1. DIOVAN [Suspect]
     Route: 048
     Dates: start: 20040715, end: 20040729
  2. NIFE - SLOW RELEASE [Concomitant]
     Indication: HYPERTENSION
     Route: 048
     Dates: start: 20040105, end: 20040715
  3. NIFE - SLOW RELEASE [Concomitant]
     Route: 048
     Dates: start: 20040729
  4. LIPITOR [Concomitant]
     Route: 048
     Dates: start: 20031220
  5. BASEN [Concomitant]
     Route: 048
     Dates: start: 20031220

REACTIONS (3)
  - ANGIONEUROTIC OEDEMA [None]
  - URINARY RETENTION [None]
  - WEIGHT INCREASED [None]
